FAERS Safety Report 7206091-7 (Version None)
Quarter: 2011Q1

REPORT INFORMATION
  Report Type: 
  Country: None (occurrence: None)
  Receive Date: 20110103
  Receipt Date: 20101220
  Transmission Date: 20110831
  Serious: Yes (Hospitalization, Other)
  Sender: FDA-Public Use
  Company Number: US-ELI_LILLY_AND_COMPANY-US201012005266

PATIENT
  Sex: Female

DRUGS (15)
  1. CLONIDINE [Concomitant]
  2. FORTEO [Suspect]
     Indication: OSTEOPOROSIS
     Dosage: 20 UG, DAILY (1/D)
     Dates: start: 20100501
  3. DORYX [Concomitant]
  4. ACETAMINOPHEN [Concomitant]
  5. TRAZODONE [Concomitant]
  6. PLAVIX [Concomitant]
  7. VITAMIN D [Concomitant]
  8. PREDNISOLONE ACETATE [Concomitant]
     Dosage: 1% DROP IN RIGHT EYE, DAILY (1/D)
  9. SIMVASTATIN [Concomitant]
  10. MIDODRINE HYDROCHLORIDE [Concomitant]
  11. CITRACAL + D [Concomitant]
  12. MICARDIS [Concomitant]
  13. HEPARIN [Concomitant]
  14. FEXOFENADINE HCL [Concomitant]
  15. FUROSEMIDE [Concomitant]

REACTIONS (6)
  - THROMBOSIS [None]
  - CONTUSION [None]
  - FEAR [None]
  - TRANSIENT ISCHAEMIC ATTACK [None]
  - MONOPLEGIA [None]
  - APHASIA [None]
